FAERS Safety Report 5704848-2 (Version None)
Quarter: 2008Q2

REPORT INFORMATION
  Report Type: 
  Country: None (occurrence: None)
  Receive Date: 20080414
  Receipt Date: 20080402
  Transmission Date: 20081010
  Serious: Yes (Hospitalization, Other)
  Sender: FDA-Public Use
  Company Number: US-ELI_LILLY_AND_COMPANY-US200803004860

PATIENT
  Sex: Female

DRUGS (8)
  1. FORTEO [Suspect]
     Indication: OSTEOPOROSIS
     Dosage: 0.1 ML, UNK
     Dates: start: 20060901
  2. LEVOTHYROXINE SODIUM [Concomitant]
     Dosage: 0.075 MG, DAILY (1/D)
  3. CYTOMEL [Concomitant]
     Dosage: 5 UG, DAILY (1/D)
  4. ASACOL [Concomitant]
     Dosage: 800 MG, 2/D
  5. ASACOL [Concomitant]
     Dosage: 400 MG, DAILY (1/D)
  6. NIFEREX [Concomitant]
     Dosage: 150 MG, DAILY (1/D)
  7. NIFEREX [Concomitant]
     Dosage: 150 MG, 2/D
  8. PRILOSEC [Concomitant]

REACTIONS (25)
  - ASTHENIA [None]
  - ASTHMA [None]
  - BACK PAIN [None]
  - CARDIAC FAILURE CONGESTIVE [None]
  - CHRONIC OBSTRUCTIVE PULMONARY DISEASE [None]
  - COLITIS [None]
  - DEHYDRATION [None]
  - DYSSTASIA [None]
  - GASTRITIS [None]
  - HYPOACUSIS [None]
  - IRON DEFICIENCY ANAEMIA [None]
  - KYPHOSIS [None]
  - MALNUTRITION [None]
  - MUSCULAR WEAKNESS [None]
  - MUSCULOSKELETAL STIFFNESS [None]
  - MYOCARDIAL INFARCTION [None]
  - PARANASAL SINUS HYPERSECRETION [None]
  - PELVIC FRACTURE [None]
  - RASH [None]
  - RENAL FAILURE CHRONIC [None]
  - RHINITIS ALLERGIC [None]
  - SCOLIOSIS [None]
  - SPINAL FRACTURE [None]
  - URINARY TRACT INFECTION [None]
  - UROSEPSIS [None]
